FAERS Safety Report 24080517 (Version 1)
Quarter: 2024Q3

REPORT INFORMATION
  Report Type: Spontaneous
  Country: FR (occurrence: FR)
  Receive Date: 20240711
  Receipt Date: 20240711
  Transmission Date: 20241016
  Serious: Yes (Hospitalization)
  Sender: PFIZER
  Company Number: None

PATIENT
  Age: 10 Year
  Sex: Male
  Weight: 35 kg

DRUGS (6)
  1. VINCRISTINE [Suspect]
     Active Substance: VINCRISTINE
     Indication: T-cell type acute leukaemia
     Dosage: 1.5 MG/M2, CYCLIC (D1, D8, D15)
     Route: 042
     Dates: start: 20240507, end: 20240521
  2. METHOTREXATE SODIUM [Suspect]
     Active Substance: METHOTREXATE SODIUM
     Indication: T-cell type acute leukaemia
     Dosage: 12 MG, SINGLE
     Route: 037
     Dates: start: 20240430, end: 20240430
  3. METHOTREXATE SODIUM [Suspect]
     Active Substance: METHOTREXATE SODIUM
     Dosage: 12 MG, SINGLE
     Route: 037
     Dates: start: 20240521, end: 20240521
  4. CERUBIDINE [Suspect]
     Active Substance: DAUNORUBICIN HYDROCHLORIDE
     Indication: T-cell type acute leukaemia
     Dosage: 25 MG/M2, CYCLIC  (D1, D8, D15)
     Route: 042
     Dates: start: 20240507, end: 20240521
  5. DEXAMETHASONE [Suspect]
     Active Substance: DEXAMETHASONE
     Indication: T-cell type acute leukaemia
     Dosage: 6.5 MG, DAILY (3.5MG-0-3MG)
     Route: 048
     Dates: start: 20240507, end: 20240609
  6. ONCASPAR [Suspect]
     Active Substance: PEGASPARGASE
     Indication: T-cell type acute leukaemia
     Dosage: 1500 IU/M2, CYCLIC (D4 - D18)
     Route: 042
     Dates: start: 20240510, end: 20240524

REACTIONS (1)
  - Posterior reversible encephalopathy syndrome [Recovering/Resolving]

NARRATIVE: CASE EVENT DATE: 20240607
